FAERS Safety Report 7766980-1 (Version None)
Quarter: 2011Q3

REPORT INFORMATION
  Report Type: 
  Country: None (occurrence: None)
  Receive Date: 20110922
  Receipt Date: 20110913
  Transmission Date: 20111222
  Serious: No
  Sender: FDA-Public Use
  Company Number: PHHY2011DK83656

PATIENT
  Sex: Male
  Weight: 70 kg

DRUGS (2)
  1. CITALOPRAM HYDROBROMIDE [Concomitant]
     Indication: DEPRESSION
  2. TASIGNA [Suspect]
     Indication: CHRONIC MYELOID LEUKAEMIA
     Dosage: 400 MG, BID
     Route: 048
     Dates: start: 20110531

REACTIONS (1)
  - LIBIDO DECREASED [None]
